FAERS Safety Report 8127932-5 (Version None)
Quarter: 2012Q1

REPORT INFORMATION
  Report Type: 
  Country: None (occurrence: None)
  Receive Date: 20120210
  Receipt Date: 20120207
  Transmission Date: 20120608
  Serious: Yes (Other)
  Sender: FDA-Public Use
  Company Number: US-PFIZER INC-2012034181

PATIENT
  Sex: Female
  Weight: 92.9 kg

DRUGS (8)
  1. LYRICA [Suspect]
     Indication: DIABETIC NEUROPATHY
     Dosage: UNK
     Dates: start: 20070101
  2. SIMVASTATIN [Concomitant]
     Indication: BLOOD CHOLESTEROL ABNORMAL
     Dosage: 40 MG, DAILY
  3. LISINOPRIL AND HYDROCHLOROTHIAZIDE [Concomitant]
     Indication: BLOOD PRESSURE ABNORMAL
     Dosage: 20/25 MG, DAILY
  4. XANAX [Concomitant]
     Indication: RELAXATION THERAPY
     Dosage: 1 MG, DAILY
  5. ACETYLSALICYLIC ACID [Concomitant]
     Indication: CARDIOVASCULAR DISORDER
     Dosage: 81 MG, DAILY
  6. VITAMIN B-12 [Concomitant]
     Dosage: UNK
  7. METFORMIN [Concomitant]
     Indication: DIABETES MELLITUS
     Dosage: 1000 MG, 2X/DAY
  8. LYRICA [Suspect]
     Indication: FIBROMYALGIA

REACTIONS (7)
  - ACTIVITIES OF DAILY LIVING IMPAIRED [None]
  - FATIGUE [None]
  - FEELING ABNORMAL [None]
  - INSOMNIA [None]
  - BLOOD CHOLESTEROL INCREASED [None]
  - PARAESTHESIA [None]
  - STRESS [None]
